FAERS Safety Report 7560050-3 (Version None)
Quarter: 2011Q2

REPORT INFORMATION
  Report Type: 
  Country: None (occurrence: None)
  Receive Date: 20110621
  Receipt Date: 20110614
  Transmission Date: 20111010
  Serious: Yes (Other)
  Sender: FDA-Public Use
  Company Number: PHFR2011GB03002

PATIENT
  Sex: Male

DRUGS (2)
  1. VALPROATE SODIUM [Concomitant]
     Dosage: 500 MG, BID
  2. TEGRETOL [Suspect]
     Indication: EPILEPSY
     Dosage: 200 MG MANE 400 MG NOCTE
     Route: 048

REACTIONS (3)
  - TREMOR [None]
  - THROMBOSIS [None]
  - PARAESTHESIA [None]
